FAERS Safety Report 5715789-9 (Version None)
Quarter: 2008Q2

REPORT INFORMATION
  Report Type: 
  Country: None (occurrence: None)
  Receive Date: 20080422
  Receipt Date: 20080324
  Transmission Date: 20081010
  Serious: Yes (Other)
  Sender: FDA-Public Use
  Company Number: 1819470-2008-00006

PATIENT
  Age: 37 Year
  Sex: Female

DRUGS (1)
  1. HUMALOG [Suspect]
     Indication: DIABETES MELLITUS
     Dosage: SUBCUTANEOUS
     Route: 058
     Dates: start: 20060501

REACTIONS (5)
  - BLOOD GLUCOSE INCREASED [None]
  - DEVICE BREAKAGE [None]
  - DEVICE MALFUNCTION [None]
  - INAPPROPRIATE DEVICE THERAPY [None]
  - PHARMACEUTICAL PRODUCT COMPLAINT [None]
